FAERS Safety Report 23136958 (Version 8)
Quarter: 2024Q3

REPORT INFORMATION
  Report Type: Spontaneous
  Country: JP (occurrence: JP)
  Receive Date: 20231102
  Receipt Date: 20240829
  Transmission Date: 20241016
  Serious: Yes (Hospitalization, Other)
  Sender: MERCK
  Company Number: JP-MSD-M2023-46079

PATIENT
  Sex: Male
  Weight: 51 kg

DRUGS (21)
  1. KEYTRUDA [Suspect]
     Active Substance: PEMBROLIZUMAB
     Indication: Renal cell carcinoma
     Dosage: 400 MILLIGRAM, EVERY 6 WEEKS
     Route: 041
     Dates: start: 20230130, end: 20230130
  2. KEYTRUDA [Suspect]
     Active Substance: PEMBROLIZUMAB
     Dosage: UNK
     Route: 041
     Dates: start: 2023, end: 2023
  3. KEYTRUDA [Suspect]
     Active Substance: PEMBROLIZUMAB
     Dosage: UNK
     Route: 041
     Dates: start: 20230508, end: 20230508
  4. LENVATINIB MESYLATE [Suspect]
     Active Substance: LENVATINIB MESYLATE
     Indication: Renal cell carcinoma
     Dosage: 20 MILLIGRAM, QD
     Route: 048
     Dates: start: 20230130, end: 20230228
  5. LENVATINIB MESYLATE [Suspect]
     Active Substance: LENVATINIB MESYLATE
     Dosage: 20 MILLIGRAM, QD
     Route: 048
     Dates: start: 20230417, end: 20230425
  6. LENVATINIB MESYLATE [Suspect]
     Active Substance: LENVATINIB MESYLATE
     Dosage: UNK
     Route: 048
     Dates: start: 20230508, end: 20230710
  7. OXYCODONE HYDROCHLORIDE [Suspect]
     Active Substance: OXYCODONE HYDROCHLORIDE
     Indication: Cancer pain
     Dosage: UNK
     Route: 065
     Dates: start: 2023, end: 2023
  8. OXYCODONE HYDROCHLORIDE [Suspect]
     Active Substance: OXYCODONE HYDROCHLORIDE
     Dosage: 40 MILLIGRAM
     Route: 065
     Dates: start: 2023, end: 2023
  9. FENTANYL [Suspect]
     Active Substance: FENTANYL\FENTANYL CITRATE
     Indication: Pain
     Dosage: UNK
     Route: 065
     Dates: start: 2023, end: 2023
  10. FENTANYL [Suspect]
     Active Substance: FENTANYL\FENTANYL CITRATE
     Dosage: UNK
     Route: 065
     Dates: start: 2023, end: 2023
  11. DICLOFENAC SODIUM [Suspect]
     Active Substance: DICLOFENAC\DICLOFENAC SODIUM
     Dosage: UNK
     Route: 065
  12. SILODOSIN [Concomitant]
     Active Substance: SILODOSIN
     Dosage: 4 MILLIGRAM, BID
     Route: 048
     Dates: start: 20230113
  13. AMITIZA [Concomitant]
     Active Substance: LUBIPROSTONE
     Dosage: 24 MILLIGRAM, QD
     Route: 048
     Dates: start: 20230113
  14. LORNOXICAM [Concomitant]
     Active Substance: LORNOXICAM
     Dosage: UNK UNK, TID
     Route: 048
  15. EPERISONE HYDROCHLORIDE [Concomitant]
     Active Substance: EPERISONE HYDROCHLORIDE
     Dosage: UNK UNK, TID
     Route: 048
  16. OPALMON [Concomitant]
     Active Substance: LIMAPROST
     Dosage: UNK UNK, TID
     Route: 048
  17. REBAMIPIDE [Concomitant]
     Active Substance: REBAMIPIDE
     Dosage: UNK UNK, TID
     Route: 048
  18. MIROGABALIN BESYLATE [Concomitant]
     Active Substance: MIROGABALIN BESYLATE
     Dosage: UNK UNK, BID
     Route: 048
  19. HERBALS [Concomitant]
     Active Substance: HERBALS
     Dosage: UNK, TID
     Route: 048
  20. TENELIGLIPTIN [Concomitant]
     Active Substance: TENELIGLIPTIN
     Dosage: UNK UNK, QD
     Route: 048
  21. MAGNESIUM OXIDE [Concomitant]
     Active Substance: MAGNESIUM OXIDE
     Dosage: UNK, TID
     Route: 048

REACTIONS (7)
  - Malignant neoplasm progression [Unknown]
  - Wernicke^s encephalopathy [Recovered/Resolved]
  - Vitamin B1 deficiency [Recovered/Resolved]
  - Decreased appetite [Recovered/Resolved]
  - Renal impairment [Not Recovered/Not Resolved]
  - Weight decreased [Recovered/Resolved]
  - Decreased appetite [Recovering/Resolving]

NARRATIVE: CASE EVENT DATE: 20230101
